FAERS Safety Report 5704442-3 (Version None)
Quarter: 2008Q2

REPORT INFORMATION
  Report Type: 
  Country: None (occurrence: None)
  Receive Date: 20080414
  Receipt Date: 20080404
  Transmission Date: 20081010
  Serious: Yes (Hospitalization, Other)
  Sender: FDA-Public Use
  Company Number: B0516295A

PATIENT
  Age: 73 Year
  Sex: Female

DRUGS (1)
  1. SERETIDE DISKUS [Suspect]
     Indication: ASTHMA
     Route: 055

REACTIONS (1)
  - APHTHOUS STOMATITIS [None]
